FAERS Safety Report 10278323 (Version 3)
Quarter: 2015Q2

REPORT INFORMATION
  Report Type: Report from Study
  Country: US (occurrence: US)
  Receive Date: 20140704
  Receipt Date: 20150413
  Transmission Date: 20150821
  Serious: Yes (Other)
  Sender: FDA-Public Use
  Company Number: PHEH2014US013205

PATIENT
  Sex: Female

DRUGS (3)
  1. TOBI [Suspect]
     Active Substance: TOBRAMYCIN
     Indication: PULMONARY FIBROSIS
  2. TOBI [Suspect]
     Active Substance: TOBRAMYCIN
     Indication: BRONCHIECTASIS
     Dosage: UNK
     Route: 055
  3. TOBI [Suspect]
     Active Substance: TOBRAMYCIN
     Indication: BRONCHITIS CHRONIC
     Dosage: 300 MG, Q12H
     Route: 055

REACTIONS (8)
  - Obstructive airways disorder [Unknown]
  - Impaired healing [Unknown]
  - Condition aggravated [Unknown]
  - Productive cough [Unknown]
  - Wound [Unknown]
  - Cerebrovascular accident [Unknown]
  - Dysphagia [Unknown]
  - Infection [Unknown]
